APPROVED DRUG PRODUCT: RAPLON
Active Ingredient: RAPACURONIUM BROMIDE
Strength: 100MG/VIAL
Dosage Form/Route: INJECTABLE;INJECTION
Application: N020984 | Product #001
Applicant: ORGANON USA INC
Approved: Aug 18, 1999 | RLD: No | RS: No | Type: DISCN